FAERS Safety Report 8460410 (Version 3)
Quarter: 2014Q1

REPORT INFORMATION
  Report Type: Spontaneous
  Country: US (occurrence: US)
  Receive Date: 20120315
  Receipt Date: 20140318
  Transmission Date: 20141002
  Serious: Yes (Other)
  Sender: FDA-Public Use
  Company Number: US-PFIZER INC-2012063076

PATIENT
  Age: 86 Year
  Sex: Female

DRUGS (1)
  1. LIDOCAINE HCL [Suspect]
     Dosage: UNK

REACTIONS (2)
  - Respiratory arrest [Unknown]
  - Drug hypersensitivity [Unknown]
